FAERS Safety Report 10366041 (Version 1)
Quarter: 2014Q3

REPORT INFORMATION
  Report Type: Spontaneous
  Country: JP (occurrence: JP)
  Receive Date: 20140806
  Receipt Date: 20140806
  Transmission Date: 20150326
  Serious: Yes (Other)
  Sender: FDA-Public Use
  Company Number: JP-GLAXOSMITHKLINE-B1019912A

PATIENT
  Sex: Male

DRUGS (11)
  1. ZYLORIC [Concomitant]
     Active Substance: ALLOPURINOL
     Indication: GOUT
     Dosage: 100MG TWICE PER DAY
     Route: 048
  2. VASOLAN [Concomitant]
     Active Substance: VERAPAMIL HYDROCHLORIDE
     Route: 048
  3. OVULANZE [Concomitant]
     Active Substance: OMEPRAZOLE
     Dosage: 20MG PER DAY
     Route: 048
  4. KINEDAK [Concomitant]
     Active Substance: EPALRESTAT
     Dosage: 50MG THREE TIMES PER DAY
     Route: 048
  5. XARELTO [Concomitant]
     Active Substance: RIVAROXABAN
     Dosage: 10MG PER DAY
     Route: 048
  6. VOGLIBOSE [Concomitant]
     Active Substance: VOGLIBOSE
     Indication: DIABETES MELLITUS
     Dosage: .3MG THREE TIMES PER DAY
     Route: 048
  7. FLUTIDE DISKUS [Suspect]
     Active Substance: FLUTICASONE PROPIONATE
     Indication: ASTHMA
     Dosage: 200MCG TWICE PER DAY
     Route: 055
     Dates: start: 20140408
  8. JANUVIA [Concomitant]
     Active Substance: SITAGLIPTIN PHOSPHATE
     Indication: DIABETES MELLITUS
     Dosage: 50MG PER DAY
     Route: 048
  9. PALNAC [Concomitant]
     Active Substance: TAMSULOSIN
     Dosage: .2MG PER DAY
     Route: 048
  10. CARBOCISTEINE [Concomitant]
     Active Substance: CARBOCYSTEINE
     Dosage: 500MG THREE TIMES PER DAY
     Route: 048
  11. METILDIGOXIN [Concomitant]
     Active Substance: METILDIGOXIN
     Dosage: .05MG PER DAY
     Route: 048

REACTIONS (3)
  - Respiratory tract haemorrhage [Recovered/Resolved]
  - Tracheal pain [Recovered/Resolved]
  - Dysphagia [Recovered/Resolved]
